FAERS Safety Report 11165553 (Version 1)
Quarter: 2015Q2

REPORT INFORMATION
  Report Type: Spontaneous
  Country: FR (occurrence: FR)
  Receive Date: 20150604
  Receipt Date: 20150604
  Transmission Date: 20150821
  Serious: Yes (Hospitalization, Other)
  Sender: FDA-Public Use
  Company Number: FR-ASTRAZENECA-2015SE53749

PATIENT
  Age: 357 Month
  Sex: Male

DRUGS (3)
  1. XEROQUEL XR [Suspect]
     Active Substance: QUETIAPINE FUMARATE
     Indication: DEPRESSION
     Route: 048
     Dates: start: 201503, end: 201504
  2. VALIUM [Concomitant]
     Active Substance: DIAZEPAM
  3. SERESTA [Suspect]
     Active Substance: OXAZEPAM
     Dosage: 7 TO 8 TABLETS PER DAY
     Route: 048

REACTIONS (5)
  - Gamma-glutamyltransferase increased [Recovering/Resolving]
  - Confusional state [Recovered/Resolved]
  - Malaise [Recovered/Resolved]
  - Drug abuse [Unknown]
  - Hepatocellular injury [Recovered/Resolved]

NARRATIVE: CASE EVENT DATE: 201503
